FAERS Safety Report 21344453 (Version 4)
Quarter: 2023Q2

REPORT INFORMATION
  Report Type: Spontaneous
  Country: CH (occurrence: CH)
  Receive Date: 20220916
  Receipt Date: 20230530
  Transmission Date: 20230721
  Serious: Yes (Other)
  Sender: FDA-Public Use
  Company Number: CH-BAYER-2022A129613

PATIENT
  Sex: Female

DRUGS (2)
  1. VITRAKVI [Suspect]
     Active Substance: LAROTRECTINIB
     Indication: Pancreatic carcinoma metastatic
     Dosage: 100 MG
     Dates: start: 202201, end: 202209
  2. VITRAKVI [Suspect]
     Active Substance: LAROTRECTINIB
     Indication: Pancreatic carcinoma metastatic
     Dosage: 100 MG, BID

REACTIONS (1)
  - Pancreatic carcinoma metastatic [Not Recovered/Not Resolved]

NARRATIVE: CASE EVENT DATE: 20220901
